FAERS Safety Report 19157031 (Version 1)
Quarter: 2021Q2

REPORT INFORMATION
  Report Type: Spontaneous
  Country: GB (occurrence: GB)
  Receive Date: 20210420
  Receipt Date: 20210420
  Transmission Date: 20210717
  Serious: Yes (Other)
  Sender: FDA-Public Use
  Company Number: GB-ALKEM LABORATORIES LIMITED-GB-ALKEM-2021-02044

PATIENT

DRUGS (14)
  1. PREGABALIN. [Suspect]
     Active Substance: PREGABALIN
     Indication: PRODUCT USED FOR UNKNOWN INDICATION
     Dosage: 50 MILLIGRAM
     Route: 065
     Dates: start: 20210319
  2. ASPIRIN. [Concomitant]
     Active Substance: ASPIRIN
     Indication: ILL-DEFINED DISORDER
     Dosage: TAKE ONE DAILY
     Route: 065
     Dates: start: 20201116, end: 20210129
  3. LETROZOLE. [Concomitant]
     Active Substance: LETROZOLE
     Indication: ILL-DEFINED DISORDER
     Dosage: TAKE ONE ONCE DAILY, TO BE REVIEWED BY ONCOLOGY...
     Route: 065
     Dates: start: 20201116, end: 20210129
  4. CLOPIDOGREL [Concomitant]
     Active Substance: CLOPIDOGREL BISULFATE
     Indication: ILL-DEFINED DISORDER
     Dosage: TAKE ONE ONCE DAILY
     Route: 065
     Dates: start: 20210129
  5. LEVOTHYROXINE. [Concomitant]
     Active Substance: LEVOTHYROXINE
     Indication: ILL-DEFINED DISORDER
     Dosage: TAKE ONE EACH MORNING
     Route: 065
     Dates: start: 20201116
  6. DULOXETINE. [Concomitant]
     Active Substance: DULOXETINE
     Indication: ILL-DEFINED DISORDER
     Dosage: TAKE ONE DAILY
     Route: 065
     Dates: start: 20201116
  7. FYBOGEL [Concomitant]
     Active Substance: PLANTAGO OVATA SEED
     Indication: ILL-DEFINED DISORDER
     Dosage: USE AS DIRECTED
     Route: 065
     Dates: start: 20201116
  8. LOPERAMIDE [Concomitant]
     Active Substance: LOPERAMIDE
     Indication: ILL-DEFINED DISORDER
     Dosage: USE WHEN REQUIRED FOR LOOSE STOOLS
     Route: 065
     Dates: start: 20201116
  9. CANDESARTAN. [Concomitant]
     Active Substance: CANDESARTAN
     Indication: ILL-DEFINED DISORDER
     Dosage: TAKE ONE ONCE DAILY
     Route: 065
     Dates: start: 20201116
  10. PARACETAMOL [Concomitant]
     Active Substance: ACETAMINOPHEN
     Indication: ILL-DEFINED DISORDER
     Dosage: TAKE 1 OR 2 4 TIMES/DAY WHEN REQUIRED
     Route: 065
     Dates: start: 20201116
  11. ZOPICLONE [Concomitant]
     Active Substance: ZOPICLONE
     Indication: ILL-DEFINED DISORDER
     Dosage: TAKE ONE OR TWO AT NIGHT
     Route: 065
     Dates: start: 20210301, end: 20210329
  12. BENDROFLUMETHIAZIDE [Concomitant]
     Active Substance: BENDROFLUMETHIAZIDE
     Indication: ILL-DEFINED DISORDER
     Dosage: TAKE ONE EACH MORNING
     Route: 065
     Dates: start: 20201116
  13. OMEPRAZOLE. [Concomitant]
     Active Substance: OMEPRAZOLE
     Indication: ILL-DEFINED DISORDER
     Dosage: TAKE TWO IN THE MORNING
     Route: 065
     Dates: start: 20201116
  14. PREGABALIN. [Concomitant]
     Active Substance: PREGABALIN
     Indication: ILL-DEFINED DISORDER
     Dosage: TAKE ONE TWICE DAILY
     Route: 065
     Dates: start: 20201116, end: 20210319

REACTIONS (1)
  - Movement disorder [Recovering/Resolving]

NARRATIVE: CASE EVENT DATE: 20210330
